FAERS Safety Report 15581438 (Version 1)
Quarter: 2018Q4

REPORT INFORMATION
  Report Type: Spontaneous
  Country: FR (occurrence: FR)
  Receive Date: 20181102
  Receipt Date: 20181102
  Transmission Date: 20190205
  Serious: Yes (Hospitalization)
  Sender: FDA-Public Use
  Company Number: FR-TEVA-2018-FR-970385

PATIENT
  Age: 67 Year
  Sex: Male

DRUGS (5)
  1. VANCOMYCINE [Suspect]
     Active Substance: VANCOMYCIN
     Route: 042
     Dates: start: 20120910, end: 20120911
  2. INEXIUM [Concomitant]
     Active Substance: ESOMEPRAZOLE
     Dates: start: 20120910
  3. MORPHINE [Concomitant]
     Active Substance: MORPHINE
     Dates: start: 20120910
  4. GENTAMICINE [Concomitant]
     Active Substance: GENTAMICIN
     Dates: start: 20120910
  5. ACUPAN [Concomitant]
     Active Substance: NEFOPAM HYDROCHLORIDE
     Dates: start: 20120910

REACTIONS (1)
  - Toxic skin eruption [Recovered/Resolved]

NARRATIVE: CASE EVENT DATE: 20120911
